FAERS Safety Report 8585155-X (Version None)
Quarter: 2012Q3

REPORT INFORMATION
  Report Type: 
  Country: None (occurrence: None)
  Receive Date: 20120810
  Receipt Date: 20120803
  Transmission Date: 20120928
  Serious: Yes (Other)
  Sender: FDA-Public Use
  Company Number: PHHY2012CZ067106

PATIENT
  Age: 55 Year

DRUGS (5)
  1. SIROLIMUS [Concomitant]
     Indication: ORGAN TRANSPLANT
  2. MYCOPHENOLATE MOFETIL [Concomitant]
     Indication: ORGAN TRANSPLANT
  3. CYCLOSPORINE [Suspect]
     Indication: ORGAN TRANSPLANT
  4. CORTICOSTEROIDS [Concomitant]
     Indication: ORGAN TRANSPLANT
  5. TACROLIMUS [Concomitant]
     Indication: ORGAN TRANSPLANT

REACTIONS (1)
  - CYTOMEGALOVIRUS COLITIS [None]
